FAERS Safety Report 8616855-0 (Version None)
Quarter: 2012Q3

REPORT INFORMATION
  Report Type: 
  Country: None (occurrence: None)
  Receive Date: 20120823
  Receipt Date: 20120809
  Transmission Date: 20120928
  Serious: Yes (Hospitalization)
  Sender: FDA-Public Use
  Company Number: US-009507513-1208USA006267

PATIENT

DRUGS (2)
  1. HEXADROL [Suspect]
  2. MK-0683 [Concomitant]
     Indication: BRAIN STEM GLIOMA
     Dosage: 230 MG/M2/DOSE ON DAYS 1-5 WEEKLY
     Route: 048
     Dates: start: 20120709, end: 20120805

REACTIONS (1)
  - EMBOLISM [None]
